FAERS Safety Report 6746454-7 (Version None)
Quarter: 2010Q2

REPORT INFORMATION
  Report Type: 
  Country: None (occurrence: None)
  Receive Date: 20100528
  Receipt Date: 20091015
  Transmission Date: 20101027
  Serious: No
  Sender: FDA-Public Use
  Company Number: US-ASTRAZENECA-2009SE32083

PATIENT
  Sex: Female

DRUGS (3)
  1. PRILOSEC OTC [Suspect]
     Route: 002
     Dates: start: 20091012, end: 20091015
  2. SIMVASTATIN [Concomitant]
     Dosage: UNKNOWN
  3. HYZAAR                             /01284801/ [Concomitant]
     Dosage: UNKNOWN

REACTIONS (1)
  - GLOSSODYNIA [None]
